FAERS Safety Report 18867144 (Version 4)
Quarter: 2021Q1

REPORT INFORMATION
  Report Type: Report from Study
  Country: NG (occurrence: NG)
  Receive Date: 20210209
  Receipt Date: 20210225
  Transmission Date: 20210420
  Serious: Yes (Death, Life-Threatening)
  Sender: FDA-Public Use
  Company Number: NVSC2021NG030133

PATIENT
  Age: 76 Year
  Sex: Male

DRUGS (1)
  1. UPERIO [Suspect]
     Active Substance: SACUBITRIL\VALSARTAN
     Indication: CARDIAC FAILURE
     Dosage: 100 MG, BID
     Route: 048
     Dates: start: 2019

REACTIONS (4)
  - Hypokinesia [Fatal]
  - Cerebrovascular accident [Fatal]
  - Speech disorder [Fatal]
  - Respiration abnormal [Fatal]

NARRATIVE: CASE EVENT DATE: 20210130
